FAERS Safety Report 19087498 (Version 1)
Quarter: 2021Q2

REPORT INFORMATION
  Report Type: Spontaneous
  Country: US (occurrence: US)
  Receive Date: 20210402
  Receipt Date: 20210402
  Transmission Date: 20210717
  Serious: Yes (Other)
  Sender: FDA-Public Use
  Company Number: None

PATIENT
  Age: 30 Year
  Sex: Female
  Weight: 86.18 kg

DRUGS (10)
  1. VITAMIN B12 [Concomitant]
     Active Substance: CYANOCOBALAMIN
  2. NITROUS OXIDE. [Suspect]
     Active Substance: NITROUS OXIDE
  3. CABERGOLIN [Concomitant]
     Active Substance: CABERGOLINE
  4. CALCIUM SUPPLEMENT [Concomitant]
     Active Substance: CALCIUM
  5. ZONEGRAN [Concomitant]
     Active Substance: ZONISAMIDE
  6. LEVOTHYROXINE. [Concomitant]
     Active Substance: LEVOTHYROXINE
  7. NITROUS OXIDE VENTILATION [Concomitant]
  8. VITAMIN B3 [Concomitant]
     Active Substance: NIACIN
  9. VITAMIN D3 [Concomitant]
     Active Substance: CHOLECALCIFEROL
  10. CYMBALTA [Concomitant]
     Active Substance: DULOXETINE HYDROCHLORIDE

REACTIONS (1)
  - Oropharyngeal pain [None]

NARRATIVE: CASE EVENT DATE: 20210401
